FAERS Safety Report 7743928-7 (Version None)
Quarter: 2011Q3

REPORT INFORMATION
  Report Type: 
  Country: None (occurrence: None)
  Receive Date: 20110912
  Receipt Date: 20110830
  Transmission Date: 20111222
  Serious: Yes (Other)
  Sender: FDA-Public Use
  Company Number: BE-GLAXOSMITHKLINE-B0722354A

PATIENT
  Sex: Female

DRUGS (3)
  1. LAMOTRIGINE [Suspect]
     Indication: AFFECTIVE DISORDER
     Dosage: 25MG TWICE PER DAY
     Route: 048
     Dates: start: 20110430, end: 20110520
  2. FLUOXETINE [Concomitant]
     Indication: DEPRESSION
     Dosage: 20MG TWICE PER DAY
     Route: 048
     Dates: start: 20100818
  3. AMOXICILLIN [Concomitant]

REACTIONS (6)
  - PRODUCTIVE COUGH [None]
  - C-REACTIVE PROTEIN INCREASED [None]
  - PNEUMONIA [None]
  - WHITE BLOOD CELL COUNT INCREASED [None]
  - RASH VESICULAR [None]
  - PYREXIA [None]
